FAERS Safety Report 5887064-3 (Version None)
Quarter: 2008Q3

REPORT INFORMATION
  Report Type: 
  Country: None (occurrence: None)
  Receive Date: 20080917
  Receipt Date: 20080905
  Transmission Date: 20090109
  Serious: Yes (Hospitalization, Other)
  Sender: FDA-Public Use
  Company Number: US-PFIZER INC-2008053457

PATIENT
  Sex: Female
  Weight: 83.9 kg

DRUGS (9)
  1. GLIPIZIDE [Suspect]
     Indication: TYPE 2 DIABETES MELLITUS
     Route: 048
     Dates: start: 20020101, end: 20080404
  2. AMBIEN [Concomitant]
  3. ZAROXOLYN [Concomitant]
  4. LASIX [Concomitant]
  5. POTASSIUM CHLORIDE [Concomitant]
  6. ALTACE [Concomitant]
  7. DIGOXIN [Concomitant]
  8. LOPRESSOR [Concomitant]
  9. ZOCOR [Concomitant]

REACTIONS (4)
  - BLOOD GLUCOSE DECREASED [None]
  - LOSS OF CONSCIOUSNESS [None]
  - MEDICATION ERROR [None]
  - TREMOR [None]
